FAERS Safety Report 7911506-2 (Version None)
Quarter: 2011Q4

REPORT INFORMATION
  Report Type: 
  Country: None (occurrence: None)
  Receive Date: 20111114
  Receipt Date: 20101227
  Transmission Date: 20120403
  Serious: Yes (Other)
  Sender: FDA-Public Use
  Company Number: US-BAYER-201027830NA

PATIENT
  Age: 56 Year
  Sex: Female

DRUGS (4)
  1. NEXAVAR [Suspect]
     Route: 048
     Dates: start: 20100701
  2. NEXAVAR [Suspect]
     Dosage: 400 MG, QOD
  3. NEXAVAR [Suspect]
     Dosage: EVERY OTHER DAY
     Route: 048
  4. NEXAVAR [Suspect]
     Indication: HEPATIC NEOPLASM MALIGNANT
     Route: 048
     Dates: start: 20100701, end: 20100701

REACTIONS (13)
  - HYPERTENSION [None]
  - HYPERKERATOSIS [None]
  - HEPATIC PAIN [None]
  - NAUSEA [None]
  - PAIN IN EXTREMITY [None]
  - ABDOMINAL PAIN UPPER [None]
  - RED BLOOD CELL COUNT DECREASED [None]
  - DECREASED APPETITE [None]
  - DYSGEUSIA [None]
  - WEIGHT DECREASED [None]
  - DIARRHOEA [None]
  - FATIGUE [None]
  - DRY SKIN [None]
